FAERS Safety Report 5638346-1 (Version None)
Quarter: 2008Q1

REPORT INFORMATION
  Report Type: 
  Country: None (occurrence: None)
  Receive Date: 20080222
  Receipt Date: 20080215
  Transmission Date: 20080703
  Serious: Yes (Life-Threatening)
  Sender: FDA-Public Use
  Company Number: 2008-01407

PATIENT
  Age: 32 Year
  Sex: Female

DRUGS (1)
  1. TRELSTAR DEPOT [Suspect]
     Indication: BLOOD LUTEINISING HORMONE INCREASED
     Dosage: 0.1 MG, DAILY, SUBCUTANEOUS
     Route: 058
     Dates: start: 20071210, end: 20080102

REACTIONS (8)
  - ABDOMINAL DISTENSION [None]
  - ASCITES [None]
  - DYSPNOEA [None]
  - ELECTROLYTE IMBALANCE [None]
  - FLUID IMBALANCE [None]
  - OVARIAN DISORDER [None]
  - OVARIAN HYPERSTIMULATION SYNDROME [None]
  - SWELLING [None]
